FAERS Safety Report 11340751 (Version 1)
Quarter: 2015Q3

REPORT INFORMATION
  Report Type: Spontaneous
  Country: US (occurrence: US)
  Receive Date: 20150805
  Receipt Date: 20150805
  Transmission Date: 20151125
  Serious: Yes (Hospitalization)
  Sender: FDA-Public Use
  Company Number: US-PFIZER INC-2015259014

PATIENT
  Age: 73 Year
  Sex: Male
  Weight: 112 kg

DRUGS (2)
  1. CYMBALTA [Concomitant]
     Active Substance: DULOXETINE HYDROCHLORIDE
     Indication: NEURALGIA
     Dosage: UNK, 2X/DAY
     Route: 048
  2. LYRICA [Suspect]
     Active Substance: PREGABALIN
     Indication: NEURALGIA
     Dosage: 100MG CAPSULE IN THE MORNING, 300MG AT NIGHT, WITH 75MG EMERGENCY DOSE IF PAIN HAS NOT ARRESTED
     Dates: start: 201409

REACTIONS (4)
  - Pain in extremity [Unknown]
  - Feeling abnormal [Recovering/Resolving]
  - Confusional state [Recovering/Resolving]
  - Personality change [Unknown]

NARRATIVE: CASE EVENT DATE: 2015
